FAERS Safety Report 6440804-7 (Version None)
Quarter: 2009Q4

REPORT INFORMATION
  Report Type: 
  Country: None (occurrence: None)
  Receive Date: 20091116
  Receipt Date: 20091106
  Transmission Date: 20100525
  Serious: Yes (Hospitalization)
  Sender: FDA-Public Use
  Company Number: DE-JNJFOC-20091102298

PATIENT
  Age: 38 Year
  Sex: Female

DRUGS (5)
  1. RISPERDAL [Suspect]
     Route: 048
     Dates: start: 20090520, end: 20090817
  2. RISPERDAL [Suspect]
     Route: 048
     Dates: start: 20090520, end: 20090817
  3. RISPERDAL [Suspect]
     Route: 048
     Dates: start: 20090520, end: 20090817
  4. RISPERDAL [Suspect]
     Route: 048
     Dates: start: 20090520, end: 20090817
  5. RISPERDAL [Suspect]
     Indication: DRUG USE FOR UNKNOWN INDICATION
     Dosage: 1-3 MG A DAY
     Route: 048
     Dates: start: 20090520, end: 20090817

REACTIONS (4)
  - AMENORRHOEA [None]
  - BLOOD PROLACTIN INCREASED [None]
  - GALACTORRHOEA [None]
  - RESTLESS LEGS SYNDROME [None]
